FAERS Safety Report 10343609 (Version 1)
Quarter: 2014Q3

REPORT INFORMATION
  Report Type: Report from Study
  Country: AU (occurrence: AU)
  Receive Date: 20140725
  Receipt Date: 20140725
  Transmission Date: 20150326
  Serious: Yes (Hospitalization)
  Sender: FDA-Public Use
  Company Number: AU-GLAXOSMITHKLINE-B0994336B

PATIENT
  Age: 77 Year
  Sex: Male

DRUGS (19)
  1. DEXAMETHASONE. [Concomitant]
     Active Substance: DEXAMETHASONE
     Indication: NAUSEA
     Dosage: 4U PER DAY
     Route: 048
     Dates: start: 20140515, end: 20140526
  2. ENOXAPARIN [Concomitant]
     Active Substance: ENOXAPARIN
     Indication: THROMBOSIS PROPHYLAXIS
     Dosage: 40U PER DAY
     Route: 058
     Dates: start: 20140516, end: 20140518
  3. METOCLOPRAMIDE. [Concomitant]
     Active Substance: METOCLOPRAMIDE
     Indication: NAUSEA
     Dosage: 10U AS REQUIRED
     Route: 048
     Dates: start: 20140515
  4. EVEROLIMUS [Suspect]
     Active Substance: EVEROLIMUS
     Indication: METASTATIC RENAL CELL CARCINOMA
     Dates: start: 20140526
  5. METOPROLOL [Concomitant]
     Active Substance: METOPROLOL
     Indication: HYPERTENSION
     Dosage: 100U PER DAY
     Route: 048
     Dates: start: 20060601
  6. NORMISON [Concomitant]
     Active Substance: TEMAZEPAM
     Indication: INSOMNIA
     Dosage: 5U PER DAY
     Route: 048
     Dates: start: 20140516, end: 20140516
  7. CEFTRIAXONE. [Concomitant]
     Active Substance: CEFTRIAXONE
     Indication: INFECTION
     Dosage: 1U PER DAY
     Route: 042
     Dates: start: 20140515, end: 20140517
  8. GLICAZIDE [Concomitant]
     Active Substance: GLICLAZIDE
     Indication: TYPE 2 DIABETES MELLITUS
     Dosage: 40U PER DAY
     Route: 048
     Dates: start: 20060601
  9. NILSTAT ORAL DROPS [Concomitant]
     Indication: TONGUE COATED
     Route: 048
     Dates: start: 20140625
  10. PAZOPANIB [Suspect]
     Active Substance: PAZOPANIB
     Indication: METASTATIC RENAL CELL CARCINOMA
     Dates: start: 20120531
  11. DUTASTERIDE + TAMSULOSIN [Concomitant]
     Indication: URINARY TRACT DISORDER
     Dosage: 500U PER DAY
     Route: 048
     Dates: start: 20060601
  12. LOPERAMIDE HYDROCHLORIDE. [Concomitant]
     Active Substance: LOPERAMIDE HYDROCHLORIDE
     Indication: DIARRHOEA
     Dosage: 10U AS REQUIRED
     Route: 048
     Dates: start: 20121212
  13. ESOMEPRAZOLE [Concomitant]
     Active Substance: ESOMEPRAZOLE
     Indication: PROPHYLAXIS
     Dosage: 40U PER DAY
     Route: 048
     Dates: start: 20140515
  14. MAXOLON [Concomitant]
     Active Substance: METOCLOPRAMIDE HYDROCHLORIDE
     Indication: PROPHYLAXIS OF NAUSEA AND VOMITING
     Route: 048
     Dates: start: 20140625
  15. DEXAMETHASONE. [Concomitant]
     Active Substance: DEXAMETHASONE
     Indication: INCREASED APPETITE
     Route: 048
     Dates: start: 20140630, end: 20140705
  16. ACCURETIC [Concomitant]
     Active Substance: HYDROCHLOROTHIAZIDE\QUINAPRIL HYDROCHLORIDE
     Dosage: 20U PER DAY
     Dates: start: 20120401
  17. FELODIPINE. [Concomitant]
     Active Substance: FELODIPINE
     Indication: HYPERTENSION
     Dosage: 20U PER DAY
     Route: 048
     Dates: start: 20060601
  18. AMOXICILLIN. [Concomitant]
     Active Substance: AMOXICILLIN
     Indication: LOWER RESPIRATORY TRACT INFECTION
     Dosage: 500U PER DAY
     Route: 048
     Dates: start: 20140405, end: 20140411
  19. PANADOL [Concomitant]
     Active Substance: ACETAMINOPHEN
     Indication: PAIN
     Route: 048
     Dates: start: 20140514, end: 20140515

REACTIONS (5)
  - Incontinence [Recovered/Resolved]
  - Chills [Recovered/Resolved]
  - Dizziness [Recovered/Resolved]
  - Pyrexia [Recovered/Resolved]
  - Decreased appetite [Recovered/Resolved]

NARRATIVE: CASE EVENT DATE: 20140709
